FAERS Safety Report 4930008-9 (Version None)
Quarter: 2006Q1

REPORT INFORMATION
  Report Type: 
  Country: None (occurrence: None)
  Receive Date: 20060302
  Receipt Date: 20051110
  Transmission Date: 20060701
  Serious: Yes (Other)
  Sender: FDA-Public Use
  Company Number: US-SP-2006-00439

PATIENT
  Age: 68 Year
  Sex: Female

DRUGS (2)
  1. BOTULISM ANTITOXIN E [Suspect]
     Indication: BOTULISM
     Route: 065
     Dates: start: 20040203
  2. BOTULISM ANTITOXIN AB [Suspect]
     Indication: BOTULISM
     Route: 065
     Dates: start: 20040203

REACTIONS (4)
  - ANAPHYLACTIC REACTION [None]
  - HYPOTENSION [None]
  - OXYGEN SATURATION DECREASED [None]
  - RASH ERYTHEMATOUS [None]
